FAERS Safety Report 5246059-3 (Version None)
Quarter: 2007Q1

REPORT INFORMATION
  Report Type: 
  Country: None (occurrence: None)
  Receive Date: 20061201
  Receipt Date: 20060807
  Transmission Date: 20070707
  Serious: No
  Sender: FDA-Public Use
  Company Number: 2006PV019122

PATIENT
  Age: 61 Year
  Sex: Male

DRUGS (2)
  1. BYETTA [Suspect]
     Indication: DRUG USE FOR UNKNOWN INDICATION
     Dosage: 10 MCG;  UNK; SC
     Route: 058
     Dates: start: 20051101
  2. ACTOS [Concomitant]

REACTIONS (1)
  - PNEUMATOSIS INTESTINALIS [None]
